FAERS Safety Report 4307591-X (Version None)
Quarter: 2004Q1

REPORT INFORMATION
  Report Type: 
  Country: None (occurrence: None)
  Receive Date: 20040226
  Receipt Date: 20040218
  Transmission Date: 20041129
  Serious: Yes (Death, Hospitalization)
  Sender: FDA-Public Use
  Company Number: SP-2004-001483

PATIENT
  Age: 65 Year
  Sex: Female
  Weight: 76.2 kg

DRUGS (7)
  1. OLMETEC 20 [Suspect]
     Indication: HYPERTENSION
     Dosage: 20 MG QD PO
     Route: 048
     Dates: start: 20030917
  2. SIMVASTATIN [Concomitant]
  3. DOXAZOSIN MESYLATE [Concomitant]
  4. ATENOLOL [Concomitant]
  5. METFORMIN [Concomitant]
  6. BENEDROFLUAZIDE [Concomitant]
  7. ZANIDIP [Concomitant]

REACTIONS (7)
  - CARDIAC ARREST [None]
  - CIRCULATORY COLLAPSE [None]
  - CORONARY ARTERY ATHEROSCLEROSIS [None]
  - COUGH [None]
  - MYOCARDIAL INFARCTION [None]
  - MYOCARDIAL ISCHAEMIA [None]
  - THROMBOSIS [None]
